FAERS Safety Report 20860824 (Version 1)
Quarter: 2022Q2

REPORT INFORMATION
  Report Type: Report from Study
  Country: GB (occurrence: GB)
  Receive Date: 20220523
  Receipt Date: 20220523
  Transmission Date: 20220721
  Serious: Yes (Other)
  Sender: FDA-Public Use
  Company Number: GB-TAKEDA-2021TUS067177

PATIENT
  Age: 74 Year
  Sex: Male

DRUGS (4)
  1. LENALIDOMIDE [Suspect]
     Active Substance: LENALIDOMIDE
     Indication: Plasma cell myeloma
     Dosage: FREQUENCY TEXT: NOT PROVIDED
     Route: 048
     Dates: end: 20211208
  2. DEXAMETHASONE [Suspect]
     Active Substance: DEXAMETHASONE
     Indication: Plasma cell myeloma
     Dosage: FREQUENCY TEXT: NOT PROVIDED
     Route: 065
  3. IXAZOMIB [Suspect]
     Active Substance: IXAZOMIB
     Indication: Plasma cell myeloma
     Dosage: FREQUENCY TEXT: NOT PROVIDED 56WAS DURIATION
     Dates: start: 20211013
  4. IXAZOMIB [Suspect]
     Active Substance: IXAZOMIB
     Dosage: FREQUENCY TEXT: NOT PROVIDED
     Dates: start: 20211013, end: 20211208

REACTIONS (26)
  - Glaucoma [Unknown]
  - Taste disorder [Unknown]
  - Urine output decreased [Unknown]
  - Fluid intake reduced [Unknown]
  - Toxicity to various agents [Unknown]
  - Nausea [Unknown]
  - Dyspnoea [Unknown]
  - Fatigue [Unknown]
  - Vision blurred [Unknown]
  - Decreased appetite [Unknown]
  - Weight decreased [Unknown]
  - Oesophageal discomfort [Unknown]
  - Immunoglobulins decreased [Unknown]
  - Peripheral swelling [Unknown]
  - Therapy partial responder [Unknown]
  - Neuropathy peripheral [Unknown]
  - Paraproteinaemia [Unknown]
  - Decreased appetite [Unknown]
  - Lower respiratory tract infection [Recovering/Resolving]
  - Decreased appetite [Unknown]
  - Upper respiratory tract infection [Recovering/Resolving]
  - Diarrhoea [Recovered/Resolved]
  - Illness [Recovered/Resolved]
  - Hepatic function abnormal [Recovered/Resolved]
  - Neck pain [Not Recovered/Not Resolved]
  - Back pain [Not Recovered/Not Resolved]

NARRATIVE: CASE EVENT DATE: 20211019
